FAERS Safety Report 5201094-6 (Version None)
Quarter: 2007Q1

REPORT INFORMATION
  Report Type: 
  Country: None (occurrence: None)
  Receive Date: 20070103
  Receipt Date: 20061218
  Transmission Date: 20070707
  Serious: Yes (Hospitalization)
  Sender: FDA-Public Use
  Company Number: 226595

PATIENT
  Age: 50 Year
  Sex: Male
  Weight: 57 kg

DRUGS (16)
  1. AVASTIN [Suspect]
     Indication: COLORECTAL CANCER
     Dosage: SEE IMAGE, INTRAVENOUS
     Route: 042
     Dates: start: 20060509
  2. AVASTIN [Suspect]
     Indication: COLORECTAL CANCER
     Dosage: SEE IMAGE, INTRAVENOUS
     Route: 042
     Dates: start: 20061205
  3. OXALIPLATIN [Suspect]
     Indication: COLORECTAL CANCER
     Dosage: SEE IMAGE
     Route: 042
     Dates: start: 20060509
  4. OXALIPLATIN [Suspect]
     Indication: COLORECTAL CANCER
     Dosage: SEE IMAGE
     Route: 042
     Dates: start: 20061205
  5. LEVOLEUCOVORIN CALCIUM (LEVOLEUCOVORIN CALCIUM) [Suspect]
     Indication: COLORECTAL CANCER
     Dosage: SEE IMAGE
     Route: 042
     Dates: start: 20060509
  6. LEVOLEUCOVORIN CALCIUM (LEVOLEUCOVORIN CALCIUM) [Suspect]
     Indication: COLORECTAL CANCER
     Dosage: SEE IMAGE
     Route: 042
     Dates: start: 20061205
  7. FLUOROURACIL [Suspect]
     Indication: COLORECTAL CANCER
     Dosage: SEE IMAGE
     Route: 042
     Dates: start: 20060509
  8. FLUOROURACIL [Suspect]
     Indication: COLORECTAL CANCER
     Dosage: SEE IMAGE
     Route: 042
     Dates: start: 20061205
  9. LACTOBACILLUS BIFIDUS (BIFIDOBACTERIUM) [Concomitant]
  10. MAGNESIUM OXIDE (MAGNESIUM OXIDE) [Concomitant]
  11. CLONAZEPAM [Concomitant]
  12. BETAMETHASONE [Concomitant]
  13. CHLORHEXIDINE (CHLORHEXIDINE GLUCONATE) [Concomitant]
  14. ALLOPURINOL [Concomitant]
  15. SCOPOLAMINE (SCOPOLAMINE NOS) [Concomitant]
  16. LOPERAMIDE HYDROCHLORIDE [Concomitant]

REACTIONS (7)
  - ABDOMINAL PAIN [None]
  - ANOREXIA [None]
  - DIARRHOEA [None]
  - GASTROENTERITIS [None]
  - ORAL INTAKE REDUCED [None]
  - PYREXIA [None]
  - WHITE BLOOD CELL COUNT DECREASED [None]
